FAERS Safety Report 18313188 (Version 1)
Quarter: 2020Q3

REPORT INFORMATION
  Report Type: Report from Study
  Country: IT (occurrence: IT)
  Receive Date: 20200925
  Receipt Date: 20200925
  Transmission Date: 20201103
  Serious: Yes (Other)
  Sender: FDA-Public Use
  Company Number: IT-BAYER-2020-196989

PATIENT
  Age: 71 Year
  Sex: Male

DRUGS (2)
  1. STIVARGA [Suspect]
     Active Substance: REGORAFENIB
     Indication: ADENOCARCINOMA OF COLON
     Dosage: 160 MG, QD
     Route: 048
     Dates: start: 20190724, end: 20190807
  2. STIVARGA [Suspect]
     Active Substance: REGORAFENIB
     Indication: ADENOCARCINOMA OF COLON
     Dosage: 160 MG, QD
     Route: 048
     Dates: start: 20190815, end: 20200226

REACTIONS (3)
  - Medication error [Recovered/Resolved]
  - Palmar-plantar erythrodysaesthesia syndrome [None]
  - Hypercreatinaemia [Recovered/Resolved]

NARRATIVE: CASE EVENT DATE: 20190807
